FAERS Safety Report 9234548 (Version 2)
Quarter: 2013Q2

REPORT INFORMATION
  Report Type: Spontaneous
  Country: BR (occurrence: BR)
  Receive Date: 20130416
  Receipt Date: 20130426
  Transmission Date: 20140414
  Serious: Yes (Other)
  Sender: FDA-Public Use
  Company Number: BR-GLAXOSMITHKLINE-B0883828A

PATIENT
  Age: 60 Year
  Sex: Male
  Weight: 80 kg

DRUGS (3)
  1. RYTHMOL [Suspect]
     Indication: ARRHYTHMIA
     Dosage: 300MG TWICE PER DAY
     Route: 048
     Dates: start: 201301
  2. ACETYLSALICYLIC ACID [Concomitant]
     Indication: BLOOD CHOLESTEROL
     Dosage: 100MG PER DAY
     Dates: start: 201301
  3. CEPHALEXIN [Concomitant]
     Indication: UMBILICAL HERNIA REPAIR
     Dosage: 500MG FOUR TIMES PER DAY
     Route: 048
     Dates: start: 20130318, end: 20130325

REACTIONS (7)
  - Umbilical hernia repair [Recovered/Resolved]
  - Memory impairment [Not Recovered/Not Resolved]
  - Sluggishness [Not Recovered/Not Resolved]
  - Bradyphrenia [Not Recovered/Not Resolved]
  - Confusional state [Recovered/Resolved]
  - Vision blurred [Recovered/Resolved]
  - Aphasia [Recovered/Resolved]
